FAERS Safety Report 21642629 (Version 1)
Quarter: 2022Q4

REPORT INFORMATION
  Report Type: Spontaneous
  Country: DE (occurrence: DE)
  Receive Date: 20221125
  Receipt Date: 20221125
  Transmission Date: 20230113
  Serious: Yes (Hospitalization, Other)
  Sender: FDA-Public Use
  Company Number: DE-MankindUS-000042

PATIENT
  Age: 70 Year
  Sex: Male

DRUGS (6)
  1. PANTOPRAZOLE SODIUM [Suspect]
     Active Substance: PANTOPRAZOLE SODIUM
     Indication: Gastrooesophageal reflux disease
  2. DAPSONE [Interacting]
     Active Substance: DAPSONE
     Indication: Pemphigoid
  3. AMLODIPINE [Concomitant]
     Active Substance: AMLODIPINE BESYLATE
     Indication: Hypertension
  4. CANDESARTAN [Concomitant]
     Active Substance: CANDESARTAN
     Indication: Hypertension
  5. FOLATE SODIUM [Concomitant]
     Active Substance: FOLATE SODIUM
  6. DIMETHINDENE MALEATE [Concomitant]
     Active Substance: DIMETHINDENE MALEATE

REACTIONS (2)
  - Drug interaction [Unknown]
  - Methaemoglobinaemia [Recovered/Resolved]
